FAERS Safety Report 10045746 (Version 2)
Quarter: 2014Q2

REPORT INFORMATION
  Report Type: Spontaneous
  Country: US (occurrence: US)
  Receive Date: 20140328
  Receipt Date: 20140509
  Transmission Date: 20141212
  Serious: No
  Sender: FDA-Public Use
  Company Number: US-009507513-1403USA009675

PATIENT
  Sex: Female

DRUGS (12)
  1. PEGINTRON [Suspect]
     Indication: HEPATITIS C
     Dosage: REDIPEN, 0.5 ML, Q7DAYS
     Dates: start: 20140319
  2. PEGINTRON [Suspect]
     Dosage: UNK, Q7DAYS
     Dates: start: 20050101, end: 20050601
  3. PEGINTRON [Suspect]
     Dosage: UNK, Q7DAYS
     Dates: start: 20040101, end: 20041101
  4. REBETOL [Suspect]
     Indication: HEPATITIS C
     Dosage: 1200 MG, B.I.D. (TWICE A DAY)
     Route: 048
     Dates: start: 20140319
  5. REBETOL [Suspect]
     Dosage: UNK, B.I.D. (TWICE A DAY)
     Route: 048
     Dates: start: 20050101, end: 20050601
  6. REBETOL [Suspect]
     Dosage: UNK, B.I.D. (TWICE A DAY)
     Route: 048
     Dates: start: 20040101, end: 20041101
  7. SOVALDI [Concomitant]
     Dosage: UNK, DAILY
  8. ALBUTEROL [Concomitant]
     Dosage: UNK, DAILY
  9. LISINOPRIL [Concomitant]
     Dosage: UNK, DAILY
  10. LEVOTHYROXINE SODIUM [Concomitant]
     Dosage: UNK, DAILY
  11. LYRICA [Concomitant]
     Dosage: UNK, TWICE DAILY
  12. URSODIOL [Concomitant]
     Dosage: UNK, THREE TIMES DAILY

REACTIONS (9)
  - Wheezing [Unknown]
  - Nasopharyngitis [Unknown]
  - Amenorrhoea [Unknown]
  - Amenorrhoea [Unknown]
  - Platelet count decreased [Unknown]
  - Neuropathy peripheral [Unknown]
  - Fatigue [Unknown]
  - Fatigue [Unknown]
  - Influenza like illness [Unknown]
